FAERS Safety Report 7917378-4 (Version None)
Quarter: 2011Q4

REPORT INFORMATION
  Report Type: 
  Country: None (occurrence: None)
  Receive Date: 20111114
  Receipt Date: 20111031
  Transmission Date: 20120403
  Serious: Yes (Death, Hospitalization)
  Sender: FDA-Public Use
  Company Number: 1098223

PATIENT
  Age: 76 Year
  Sex: Male

DRUGS (6)
  1. ASPIRIN [Concomitant]
  2. GEMCITABINE HYDROCHLORIDE [Suspect]
     Indication: LUNG ADENOCARCINOMA
     Dosage: INTRAVENOUS DRIP
     Route: 041
  3. HYDROXYUREA [Suspect]
     Indication: ESSENTIAL THROMBOCYTHAEMIA
  4. CARBOPLATIN [Suspect]
     Indication: LUNG ADENOCARCINOMA
     Dosage: INTRAVENOUS DRIP
     Route: 041
  5. LANSOPRAZOLE [Concomitant]
  6. PYRIDOSTIGMINE BROMIDE [Concomitant]

REACTIONS (10)
  - JC VIRUS INFECTION [None]
  - RED BLOOD CELL COUNT DECREASED [None]
  - GENERAL PHYSICAL HEALTH DETERIORATION [None]
  - PLATELET COUNT INCREASED [None]
  - CD4 LYMPHOCYTES DECREASED [None]
  - CD8 LYMPHOCYTES DECREASED [None]
  - LEUKOPENIA [None]
  - PROGRESSIVE MULTIFOCAL LEUKOENCEPHALOPATHY [None]
  - CENTRAL NERVOUS SYSTEM INFECTION [None]
  - RESPIRATORY DISORDER [None]
